FAERS Safety Report 4776264-1 (Version None)
Quarter: 2005Q3

REPORT INFORMATION
  Report Type: 
  Country: None (occurrence: None)
  Receive Date: 20050922
  Receipt Date: 20050909
  Transmission Date: 20060218
  Serious: Yes (Other)
  Sender: FDA-Public Use
  Company Number: US-JNJFOC-20050902808

PATIENT
  Age: 48 Year
  Sex: Male

DRUGS (2)
  1. DURAGESIC-100 [Suspect]
     Route: 062
     Dates: start: 20010101
  2. DURAGESIC-100 [Suspect]
     Route: 062
     Dates: start: 20010101

REACTIONS (4)
  - DIZZINESS [None]
  - EUPHORIC MOOD [None]
  - FEELING OF DESPAIR [None]
  - SUICIDAL IDEATION [None]
